FAERS Safety Report 14744556 (Version 1)
Quarter: 2018Q2

REPORT INFORMATION
  Report Type: Report from Study
  Country: HU (occurrence: HU)
  Receive Date: 20180411
  Receipt Date: 20180411
  Transmission Date: 20180711
  Serious: Yes (Hospitalization, Other)
  Sender: FDA-Public Use
  Company Number: HU-ROCHE-1194731

PATIENT
  Age: 65 Year
  Sex: Male
  Weight: 81 kg

DRUGS (27)
  1. PREDNISOLONE. [Suspect]
     Active Substance: PREDNISOLONE
     Indication: DIFFUSE LARGE B-CELL LYMPHOMA
     Dosage: DATE OF MOST RECENT DOSE PRIOR TO AE: 04/MAR/2013.?MOST RECENT DOSE 100MG PRIOR TO SAE: 11/FEB/2013.
     Route: 065
     Dates: start: 20121004
  2. TRAMADOL. [Concomitant]
     Active Substance: TRAMADOL
     Indication: PSORIATIC ARTHROPATHY
     Route: 065
     Dates: start: 20120802
  3. ALLOPURINOL. [Concomitant]
     Active Substance: ALLOPURINOL
     Route: 065
     Dates: start: 20121004
  4. KALIUM CHLORATUM [Concomitant]
     Active Substance: POTASSIUM CHLORIDE
     Route: 065
     Dates: start: 20130207, end: 20130211
  5. MEROPENEM. [Concomitant]
     Active Substance: MEROPENEM
     Indication: FEBRILE NEUTROPENIA
  6. VINCRISTINE [Suspect]
     Active Substance: VINCRISTINE
     Indication: DIFFUSE LARGE B-CELL LYMPHOMA
     Dosage: DATE OF MOST RECENT DOSE PRIOR TO AE: 28/FEB/2013.?MOST RECENT DOSE  2MG TAKEN PRIOR TO SAE: 07/FEB/
     Route: 042
     Dates: start: 20121004
  7. CLOPIDOGREL [Concomitant]
     Active Substance: CLOPIDOGREL BISULFATE
     Indication: ARTERIOSCLEROSIS
     Route: 065
     Dates: start: 20080901
  8. PANTOPRAZOLE [Concomitant]
     Active Substance: PANTOPRAZOLE
     Indication: DYSPEPSIA
     Dosage: 2X40 MG
     Route: 065
     Dates: start: 20121206
  9. KALIUM CHLORATUM [Concomitant]
     Active Substance: POTASSIUM CHLORIDE
     Route: 065
     Dates: start: 20130117, end: 20130121
  10. QUINAPRIL-HCT [Concomitant]
     Indication: HYPERTENSION
     Dosage: 5/6.25 MG
     Route: 065
     Dates: start: 20080901
  11. FILGRASTIM [Concomitant]
     Active Substance: FILGRASTIM
     Dosage: THREE TIMES
     Route: 065
     Dates: start: 20130519, end: 20130528
  12. DIMETINDENE [Concomitant]
     Active Substance: DIMETHINDENE
     Indication: PREMEDICATION
     Route: 065
     Dates: start: 20130207, end: 20130207
  13. CIPROFLOXACIN. [Concomitant]
     Active Substance: CIPROFLOXACIN
     Indication: NEUTROPENIA
     Route: 048
     Dates: start: 20130218, end: 20130222
  14. LAMIVUDINE. [Concomitant]
     Active Substance: LAMIVUDINE
     Dosage: 1X100 MG
     Route: 065
     Dates: start: 20130222
  15. DOXORUBICIN [Suspect]
     Active Substance: DOXORUBICIN
     Indication: DIFFUSE LARGE B-CELL LYMPHOMA
     Dosage: DATE OF MOST RECENT DOSE PRIOR TO AE: 28/FEB/2013?MOST RECENT DOSE  70MG PRIOR TO SAE: 07/FEB/2013.
     Route: 042
     Dates: start: 20121004
  16. MEROPENEM. [Concomitant]
     Active Substance: MEROPENEM
     Indication: GASTROENTERITIS
     Route: 065
     Dates: start: 20130126, end: 20130131
  17. FILGRASTIM [Concomitant]
     Active Substance: FILGRASTIM
     Indication: FEBRILE NEUTROPENIA
     Route: 065
     Dates: start: 20130126, end: 20130128
  18. FILGRASTIM [Concomitant]
     Active Substance: FILGRASTIM
     Indication: PROPHYLAXIS
     Route: 065
     Dates: start: 20130218, end: 20130219
  19. PARACETAMOLUM [Concomitant]
     Active Substance: ACETAMINOPHEN
     Route: 065
     Dates: start: 20130228, end: 20130228
  20. KALIUM CHLORATUM [Concomitant]
     Active Substance: POTASSIUM CHLORIDE
     Route: 065
     Dates: start: 20130228, end: 20130304
  21. PARACETAMOLUM [Concomitant]
     Active Substance: ACETAMINOPHEN
     Indication: PREMEDICATION
     Route: 065
     Dates: start: 20130207, end: 20130207
  22. METHYLPREDNISOLON [Concomitant]
     Active Substance: METHYLPREDNISOLONE
     Indication: PSORIATIC ARTHROPATHY
     Route: 065
     Dates: start: 20061201
  23. FLUCONAZOLE. [Concomitant]
     Active Substance: FLUCONAZOLE
     Indication: NEUTROPENIA
     Route: 065
     Dates: start: 20130218, end: 20130222
  24. OBINUTUZUMAB. [Suspect]
     Active Substance: OBINUTUZUMAB
     Indication: DIFFUSE LARGE B-CELL LYMPHOMA
     Dosage: 4 MG/ML, VOLUME OF MOST RECENT DOSE 250 ML, DATE OF MOST RECENT DOSE PRIOR TO ADVERSE EVENT (AE): 28
     Route: 042
     Dates: start: 20121004
  25. CYCLOPHOSPHAMIDE. [Suspect]
     Active Substance: CYCLOPHOSPHAMIDE
     Indication: DIFFUSE LARGE B-CELL LYMPHOMA
     Dosage: DATE OF MOST RECENT DOSE PRIOR TO AE: 28/FEB/2013.?MOST RECENT DOSE 1070MG PRIOR TO SAE: 07/FEB/2013
     Route: 042
     Dates: start: 20121004
  26. ACICLOVIR [Concomitant]
     Active Substance: ACYCLOVIR
     Indication: HERPES SIMPLEX
     Dosage: 5X400 MG
     Route: 065
     Dates: start: 20121011
  27. DOMPERIDONE [Concomitant]
     Active Substance: DOMPERIDONE
     Indication: DYSPEPSIA
     Dosage: 3X10 MG
     Route: 065
     Dates: start: 20121206

REACTIONS (2)
  - Hepatitis B reactivation [Not Recovered/Not Resolved]
  - Anaemia [Recovered/Resolved]

NARRATIVE: CASE EVENT DATE: 20130218
